FAERS Safety Report 4732081-X (Version None)
Quarter: 2005Q3

REPORT INFORMATION
  Report Type: 
  Country: None (occurrence: None)
  Receive Date: 20050722
  Receipt Date: 20050413
  Transmission Date: 20060218
  Serious: No
  Sender: FDA-Public Use
  Company Number: 05P-163-0297228-00

PATIENT
  Age: 38 Year
  Sex: Male
  Weight: 86 kg

DRUGS (10)
  1. NORVIR [Suspect]
     Indication: HIV INFECTION
     Dosage: 100 MG, 2 IN 1 D, ORAL
     Route: 048
     Dates: start: 20050110
  2. BLINDED SCH 417690 STUDY TABLETS [Suspect]
     Indication: HIV INFECTION
     Dosage: ORAL
     Route: 048
     Dates: start: 20050110
  3. SAQUINAVIR MESILATE [Concomitant]
  4. ZIDOVUDINE [Concomitant]
  5. VALACYCLOVIR HCL [Concomitant]
  6. AZITHROMYCIN [Concomitant]
  7. BACTRIM [Concomitant]
  8. HYDROCORTISONE [Concomitant]
  9. ENFUVIRTIDE [Concomitant]
  10. TRUVADA [Concomitant]

REACTIONS (7)
  - DIARRHOEA [None]
  - DIZZINESS [None]
  - HEADACHE [None]
  - NAUSEA [None]
  - PNEUMONIA [None]
  - SINUS DISORDER [None]
  - VOMITING [None]
